FAERS Safety Report 16706229 (Version 3)
Quarter: 2019Q3

REPORT INFORMATION
  Report Type: Spontaneous
  Country: US (occurrence: US)
  Receive Date: 20190815
  Receipt Date: 20190919
  Transmission Date: 20191004
  Serious: Yes (Hospitalization, Other)
  Sender: FDA-Public Use
  Company Number: US-BIOGEN-2019BI00773234

PATIENT
  Sex: Female

DRUGS (3)
  1. TECFIDERA [Suspect]
     Active Substance: DIMETHYL FUMARATE
     Route: 065
  2. TECFIDERA [Suspect]
     Active Substance: DIMETHYL FUMARATE
     Indication: MULTIPLE SCLEROSIS
     Dosage: STARTING DOSE
     Route: 048
  3. TECFIDERA [Suspect]
     Active Substance: DIMETHYL FUMARATE
     Dosage: MAINTENANCE DOSE
     Route: 048
     Dates: start: 2019

REACTIONS (12)
  - Ocular hyperaemia [Recovered/Resolved]
  - Fall [Recovered/Resolved]
  - Abdominal pain upper [Unknown]
  - Tooth fracture [Unknown]
  - Headache [Recovered/Resolved]
  - Dizziness [Unknown]
  - Nausea [Recovered/Resolved]
  - Urticaria [Unknown]
  - Vomiting [Recovered/Resolved]
  - Epilepsy [Not Recovered/Not Resolved]
  - Candida infection [Unknown]
  - Chest pain [Recovered/Resolved]
